FAERS Safety Report 21592613 (Version 1)
Quarter: 2022Q4

REPORT INFORMATION
  Report Type: Spontaneous
  Country: US (occurrence: None)
  Receive Date: 20221111
  Receipt Date: 20221111
  Transmission Date: 20230113
  Serious: Yes (Life-Threatening, Hospitalization)
  Sender: FDA-Public Use
  Company Number: None

PATIENT
  Sex: Male

DRUGS (1)
  1. ABIRATERONE [Suspect]
     Active Substance: ABIRATERONE
     Dosage: 1000 MG DAILY ORAL
     Route: 048

REACTIONS (5)
  - Small intestinal obstruction [None]
  - Intra-abdominal fluid collection [None]
  - Gastric pH decreased [None]
  - Therapy cessation [None]
  - Hyperhidrosis [None]
